FAERS Safety Report 5851740-9 (Version None)
Quarter: 2008Q3

REPORT INFORMATION
  Report Type: 
  Country: None (occurrence: None)
  Receive Date: 20080820
  Receipt Date: 20080814
  Transmission Date: 20090109
  Serious: Yes (Hospitalization, Other)
  Sender: FDA-Public Use
  Company Number: PHBS2008TN05405

PATIENT
  Age: 37 Year
  Sex: Female

DRUGS (4)
  1. METOPROLOL [Suspect]
     Indication: CORONARY ARTERY THROMBOSIS
     Dosage: 200 MG/DAY
     Route: 065
  2. FUROSEMIDE [Suspect]
     Indication: CORONARY ARTERY THROMBOSIS
     Dosage: 20 MG, BID
     Route: 065
  3. SALICYLIC ACID [Suspect]
     Indication: CORONARY ARTERY THROMBOSIS
     Dosage: 160 MG/DAY
     Route: 065
  4. CORTICOSTEROID NOS [Suspect]

REACTIONS (5)
  - CARDIAC FAILURE [None]
  - DRUG EXPOSURE DURING PREGNANCY [None]
  - EJECTION FRACTION DECREASED [None]
  - MYOCARDIAL INFARCTION [None]
  - PREMATURE BABY [None]
